FAERS Safety Report 5157077-8 (Version None)
Quarter: 2006Q4

REPORT INFORMATION
  Report Type: 
  Country: None (occurrence: None)
  Receive Date: 20061127
  Receipt Date: 20061115
  Transmission Date: 20070319
  Serious: Yes (Hospitalization)
  Sender: FDA-Public Use
  Company Number: PHBS2006NO17959

PATIENT
  Age: 77 Year
  Sex: Female

DRUGS (2)
  1. DIOVAN COMP [Suspect]
     Route: 048
  2. EFFEXOR [Suspect]
     Indication: DEPRESSION
     Dosage: 75 MG, QD
     Route: 048
     Dates: end: 20061016

REACTIONS (10)
  - BLOOD BILIRUBIN INCREASED [None]
  - BLOOD LACTATE DEHYDROGENASE INCREASED [None]
  - BLOOD OSMOLARITY DECREASED [None]
  - BLOOD SODIUM DECREASED [None]
  - ENCEPHALOPATHY [None]
  - FALL [None]
  - HAEMOGLOBIN DECREASED [None]
  - MALAISE [None]
  - TRANSFERRIN DECREASED [None]
  - URINE SODIUM DECREASED [None]
